FAERS Safety Report 6381552-1 (Version None)
Quarter: 2009Q3

REPORT INFORMATION
  Report Type: 
  Country: None (occurrence: None)
  Receive Date: 20090925
  Receipt Date: 20090911
  Transmission Date: 20100115
  Serious: Yes (Other)
  Sender: FDA-Public Use
  Company Number: 8052262

PATIENT
  Sex: Female

DRUGS (4)
  1. LEVETIRACETAM [Suspect]
     Indication: EPILEPSY
     Dosage: 1500 MG PO
     Route: 048
  2. LEVETIRACETAM [Suspect]
     Indication: EPILEPSY
     Dosage: 2000 MG PO
     Route: 048
  3. VALPROATE SODIUM [Suspect]
     Indication: EPILEPSY
     Dosage: 1800 MG /D PO
     Route: 048
  4. TOPIRAMATE [Suspect]
     Indication: EPILEPSY
     Dosage: 300 MG /D PO
     Route: 048

REACTIONS (3)
  - CONDITION AGGRAVATED [None]
  - DRUG EXPOSURE DURING PREGNANCY [None]
  - GRAND MAL CONVULSION [None]
